FAERS Safety Report 9136791 (Version 1)
Quarter: 2013Q1

REPORT INFORMATION
  Report Type: Spontaneous
  Country: DE (occurrence: DE)
  Receive Date: 20130304
  Receipt Date: 20130304
  Transmission Date: 20140127
  Serious: Yes (Congenital Anomaly)
  Sender: FDA-Public Use
  Company Number: DE-ASTRAZENECA-2013SE12143

PATIENT
  Sex: 0

DRUGS (1)
  1. BELOC-ZOK [Suspect]
     Indication: ARRHYTHMIA
     Route: 064
     Dates: start: 20110830

REACTIONS (1)
  - Cleft lip [Unknown]
